FAERS Safety Report 5100697-7 (Version None)
Quarter: 2006Q3

REPORT INFORMATION
  Report Type: 
  Country: None (occurrence: None)
  Receive Date: 20060906
  Receipt Date: 20060824
  Transmission Date: 20061208
  Serious: Yes (Death, Other)
  Sender: FDA-Public Use
  Company Number: 2006103149

PATIENT
  Age: 67 Year
  Sex: Female

DRUGS (9)
  1. GEODON [Suspect]
     Indication: OBSESSIVE-COMPULSIVE DISORDER
     Dosage: 80 MG (40 MG, 2 IN 1 D)
     Dates: start: 20060508
  2. LISINOPRIL [Concomitant]
  3. PAXIL [Concomitant]
  4. METHOTREXATE [Concomitant]
  5. FOSAMAX [Concomitant]
  6. PREVACID [Concomitant]
  7. CELEBREX [Concomitant]
  8. VITAMINS [Concomitant]
  9. CALCIUM GLUCONATE [Concomitant]

REACTIONS (5)
  - BLOOD BILIRUBIN INCREASED [None]
  - BLOOD CHLORIDE DECREASED [None]
  - BLOOD SODIUM ABNORMAL [None]
  - CARBON DIOXIDE DECREASED [None]
  - SUDDEN DEATH [None]
